FAERS Safety Report 7426048-0 (Version None)
Quarter: 2011Q2

REPORT INFORMATION
  Report Type: 
  Country: None (occurrence: None)
  Receive Date: 20110420
  Receipt Date: 20110412
  Transmission Date: 20111010
  Serious: Yes (Other)
  Sender: FDA-Public Use
  Company Number: DE-ROCHE-772135

PATIENT
  Sex: Female

DRUGS (2)
  1. PACLITAXEL [Suspect]
     Route: 065
  2. HERCEPTIN [Suspect]
     Route: 065

REACTIONS (1)
  - URETERIC STENOSIS [None]
